FAERS Safety Report 13833285 (Version 1)
Quarter: 2017Q3

REPORT INFORMATION
  Report Type: Spontaneous
  Country: US (occurrence: US)
  Receive Date: 20170803
  Receipt Date: 20170803
  Transmission Date: 20171127
  Serious: No
  Sender: FDA-Public Use
  Company Number: None

PATIENT
  Age: 18 Year
  Sex: Female

DRUGS (1)
  1. GILENYA [Suspect]
     Active Substance: FINGOLIMOD HYDROCHLORIDE
     Indication: MULTIPLE SCLEROSIS
     Dosage: 0.5MG ONCE A DAY BY MOUTH
     Route: 048
     Dates: start: 20170210

REACTIONS (2)
  - Headache [None]
  - Visual impairment [None]

NARRATIVE: CASE EVENT DATE: 20170701
